FAERS Safety Report 9536731 (Version 1)
Quarter: 2013Q4

REPORT INFORMATION
  Report Type: Spontaneous
  Country: US (occurrence: None)
  Receive Date: 20130918
  Receipt Date: 20130918
  Transmission Date: 20140711
  Serious: Yes (Hospitalization)
  Sender: FDA-Public Use
  Company Number: None

PATIENT
  Age: 9 Year
  Sex: Male

DRUGS (4)
  1. SORAFENIB [Suspect]
     Indication: NEPHROBLASTOMA
     Dosage: 150MG BID  PO
     Route: 048
     Dates: start: 20130603, end: 20130825
  2. SORAFENIB [Suspect]
     Indication: METASTASIS
     Dosage: 150MG BID  PO
     Route: 048
     Dates: start: 20130603, end: 20130825
  3. IRINOTECAN [Suspect]
     Indication: NEPHROBLASTOMA
     Dosage: 70MG PO DAILY FOR 5 DAYS
     Route: 048
     Dates: start: 20130603, end: 20130809
  4. IRINOTECAN [Suspect]
     Indication: METASTASIS
     Dosage: 70MG PO DAILY FOR 5 DAYS
     Route: 048
     Dates: start: 20130603, end: 20130809

REACTIONS (2)
  - Pulmonary mass [None]
  - Bladder wall calcification [None]
